FAERS Safety Report 7178809-3 (Version None)
Quarter: 2010Q4

REPORT INFORMATION
  Report Type: 
  Country: None (occurrence: None)
  Receive Date: 20101217
  Receipt Date: 20101217
  Transmission Date: 20110411
  Serious: Yes (Hospitalization, Other)
  Sender: FDA-Public Use
  Company Number: None

PATIENT
  Age: 7 Month
  Sex: Male
  Weight: 9.9791 kg

DRUGS (1)
  1. HYLANDS TEETHING TABLETS HOMEPATHIC HYLANDS, INC [Suspect]
     Indication: TEETHING
     Dosage: 3 TABS 4X A DAY SL
     Route: 060
     Dates: start: 20100301, end: 20100315

REACTIONS (1)
  - METHAEMOGLOBINAEMIA [None]
